FAERS Safety Report 7613792-5 (Version None)
Quarter: 2011Q3

REPORT INFORMATION
  Report Type: 
  Country: None (occurrence: None)
  Receive Date: 20110708
  Receipt Date: 20110627
  Transmission Date: 20111222
  Serious: Yes (Other)
  Sender: FDA-Public Use
  Company Number: 2010SP043891

PATIENT
  Age: 16 Year
  Sex: Female

DRUGS (2)
  1. ANTI-DEPRESSANTS [Concomitant]
  2. IMPLANON [Suspect]
     Indication: PRODUCT USED FOR UNKNOWN INDICATION
     Dates: start: 20100125

REACTIONS (6)
  - VOMITING [None]
  - PREGNANCY WITH IMPLANT CONTRACEPTIVE [None]
  - CAESAREAN SECTION [None]
  - WEIGHT INCREASED [None]
  - BREECH PRESENTATION [None]
  - IMPLANT SITE PRURITUS [None]
